FAERS Safety Report 7572068-5 (Version None)
Quarter: 2011Q2

REPORT INFORMATION
  Report Type: 
  Country: None (occurrence: None)
  Receive Date: 20110624
  Receipt Date: 20110615
  Transmission Date: 20111010
  Serious: Yes (Other)
  Sender: FDA-Public Use
  Company Number: US-JNJFOC-20110607842

PATIENT
  Sex: Female

DRUGS (1)
  1. SIMPONI [Suspect]
     Indication: RHEUMATOID ARTHRITIS
     Route: 058
     Dates: start: 20110101

REACTIONS (7)
  - FEELING HOT [None]
  - POISONING [None]
  - DIARRHOEA [None]
  - ERYTHEMA [None]
  - ABDOMINAL DISCOMFORT [None]
  - ASTHENIA [None]
  - HEADACHE [None]
